FAERS Safety Report 12369619 (Version 1)
Quarter: 2016Q2

REPORT INFORMATION
  Report Type: Spontaneous
  Country: US (occurrence: US)
  Receive Date: 20160516
  Receipt Date: 20160516
  Transmission Date: 20160815
  Serious: Yes (Life-Threatening, Hospitalization, Other)
  Sender: FDA-Public Use
  Company Number: US-ZYDUS-011054

PATIENT
  Age: 87 Year
  Sex: Female

DRUGS (2)
  1. AMLODIPINE [Suspect]
     Active Substance: AMLODIPINE BESYLATE
     Indication: PRODUCT USED FOR UNKNOWN INDICATION
     Dosage: 100 TABLETS
     Route: 048
  2. CARVEDILOL/CARVEDILOL HYDROCHLODRIDE [Suspect]
     Active Substance: CARVEDILOL
     Indication: PRODUCT USED FOR UNKNOWN INDICATION
     Dosage: 100 TABLETS
     Route: 048

REACTIONS (9)
  - Acute respiratory distress syndrome [Unknown]
  - Bradycardia [Unknown]
  - Mental status changes [Unknown]
  - Respiratory failure [Unknown]
  - Metabolic acidosis [Unknown]
  - Condition aggravated [Unknown]
  - Hypotension [Unknown]
  - Overdose [Unknown]
  - Acute kidney injury [Recovering/Resolving]
